FAERS Safety Report 11513468 (Version 4)
Quarter: 2016Q3

REPORT INFORMATION
  Report Type: Spontaneous
  Country: US (occurrence: US)
  Receive Date: 20150916
  Receipt Date: 20160907
  Transmission Date: 20161109
  Serious: Yes (Other)
  Sender: FDA-Public Use
  Company Number: US-PFIZER INC-2015301814

PATIENT
  Sex: Male

DRUGS (2)
  1. TEGRETOL [Suspect]
     Active Substance: CARBAMAZEPINE
     Dosage: UNK
  2. DILANTIN [Suspect]
     Active Substance: PHENYTOIN
     Dosage: UNK

REACTIONS (14)
  - Drug level increased [Unknown]
  - Seizure [Unknown]
  - Balance disorder [Unknown]
  - Blood alkaline phosphatase increased [Unknown]
  - Weight decreased [Unknown]
  - Dyskinesia [Unknown]
  - Muscular weakness [Unknown]
  - Toxicity to various agents [Unknown]
  - Discomfort [Unknown]
  - Somnolence [Unknown]
  - Anaemia [Unknown]
  - Ataxia [Unknown]
  - Skin odour abnormal [Unknown]
  - Dysstasia [Unknown]
